FAERS Safety Report 4927498-4 (Version None)
Quarter: 2006Q1

REPORT INFORMATION
  Report Type: 
  Country: None (occurrence: None)
  Receive Date: 20060228
  Receipt Date: 20050829
  Transmission Date: 20060701
  Serious: Yes (Hospitalization)
  Sender: FDA-Public Use
  Company Number: US-MERCK-0508USA04851

PATIENT
  Age: 45 Year
  Sex: Male
  Weight: 107 kg

DRUGS (1)
  1. VIOXX [Suspect]
     Indication: BACK PAIN
     Route: 048
     Dates: start: 20020801, end: 20031229

REACTIONS (1)
  - MYOCARDIAL INFARCTION [None]
